FAERS Safety Report 6199598-5 (Version None)
Quarter: 2009Q2

REPORT INFORMATION
  Report Type: 
  Country: None (occurrence: None)
  Receive Date: 20090522
  Receipt Date: 20090518
  Transmission Date: 20091009
  Serious: Yes (Disabling)
  Sender: FDA-Public Use
  Company Number: D0061559A

PATIENT
  Sex: Male
  Weight: 59 kg

DRUGS (3)
  1. LAMICTAL [Suspect]
     Dosage: 12.5MG TWICE PER DAY
     Route: 048
  2. RISPERDAL [Concomitant]
     Dosage: 1.5MG PER DAY
     Route: 065
  3. ORFIRIL [Concomitant]
     Dosage: 450MG PER DAY
     Route: 065

REACTIONS (1)
  - OBESITY [None]
